FAERS Safety Report 4683909-3 (Version None)
Quarter: 2005Q2

REPORT INFORMATION
  Report Type: 
  Country: None (occurrence: None)
  Receive Date: 20050607
  Receipt Date: 20050527
  Transmission Date: 20051028
  Serious: Yes (Hospitalization)
  Sender: FDA-Public Use
  Company Number: FR-ROCHE-405953

PATIENT
  Age: 62 Year
  Sex: Female
  Weight: 40 kg

DRUGS (9)
  1. ROCEPHIN [Suspect]
     Indication: UPPER RESPIRATORY TRACT INFECTION
     Route: 030
     Dates: start: 20050127
  2. ICAZ LP [Suspect]
     Route: 048
  3. PROFENID [Suspect]
     Indication: UPPER RESPIRATORY TRACT INFECTION
     Route: 030
     Dates: start: 20050127, end: 20050129
  4. NISISCO [Suspect]
     Indication: DRUG USE FOR UNKNOWN INDICATION
     Route: 048
  5. GLUCOPHAGE [Suspect]
     Indication: DRUG USE FOR UNKNOWN INDICATION
     Route: 048
  6. DIAMICRON [Suspect]
     Indication: DRUG USE FOR UNKNOWN INDICATION
     Route: 048
  7. LESCOL [Concomitant]
     Indication: DYSLIPIDAEMIA
  8. PARADEX [Concomitant]
     Indication: UPPER RESPIRATORY TRACT INFECTION
     Dates: start: 20050127
  9. DOLIPRANE [Concomitant]
     Indication: UPPER RESPIRATORY TRACT INFECTION
     Dates: start: 20050127

REACTIONS (5)
  - HAEMODIALYSIS [None]
  - HYPOGLYCAEMIA [None]
  - LACTIC ACIDOSIS [None]
  - PERFORATED ULCER [None]
  - RENAL FAILURE ACUTE [None]
